FAERS Safety Report 23252770 (Version 1)
Quarter: 2023Q4

REPORT INFORMATION
  Report Type: Report from Study
  Country: US (occurrence: US)
  Receive Date: 20231201
  Receipt Date: 20231201
  Transmission Date: 20240109
  Serious: Yes (Death, Hospitalization)
  Sender: FDA-Public Use
  Company Number: US-Eisai-EC-2023-154106

PATIENT
  Age: 56 Year
  Sex: Female

DRUGS (1)
  1. LENVIMA [Suspect]
     Active Substance: LENVATINIB
     Indication: Product used for unknown indication
     Route: 048
     Dates: start: 202203

REACTIONS (3)
  - Cardiac arrest [Fatal]
  - Hypoxia [Unknown]
  - Hypertension [Unknown]

NARRATIVE: CASE EVENT DATE: 20230101
